FAERS Safety Report 20578883 (Version 1)
Quarter: 2022Q1

REPORT INFORMATION
  Report Type: Spontaneous
  Country: US (occurrence: None)
  Receive Date: 20220308
  Receipt Date: 20220308
  Transmission Date: 20220423
  Serious: Yes (Life-Threatening)
  Sender: FDA-Public Use
  Company Number: None

PATIENT
  Age: 59 Year
  Sex: Female
  Weight: 96 kg

DRUGS (1)
  1. POTASSIUM NITRATE [Suspect]
     Active Substance: POTASSIUM NITRATE
     Indication: Mineral supplementation
     Route: 048
     Dates: start: 20220121, end: 20220121

REACTIONS (3)
  - Paraesthesia [None]
  - Hyperkalaemia [None]
  - Methaemoglobinaemia [None]

NARRATIVE: CASE EVENT DATE: 20220121
